FAERS Safety Report 4384908-1 (Version None)
Quarter: 2004Q2

REPORT INFORMATION
  Report Type: 
  Country: None (occurrence: None)
  Receive Date: 20040622
  Receipt Date: 20040607
  Transmission Date: 20050107
  Serious: Yes (Hospitalization)
  Sender: FDA-Public Use
  Company Number: B0334956B

PATIENT
  Age: 23 Year
  Sex: Female

DRUGS (3)
  1. EMGEL [Suspect]
     Indication: CHLAMYDIAL INFECTION
     Dosage: ORAL
     Route: 048
     Dates: start: 20040321, end: 20040407
  2. ORAL CONTRACEPTIVE [Concomitant]
  3. PAROXETINE HYDROCHLORIDE [Concomitant]

REACTIONS (2)
  - HEPATITIS [None]
  - PANCREATITIS ACUTE [None]
